FAERS Safety Report 7020366-6 (Version None)
Quarter: 2010Q3

REPORT INFORMATION
  Report Type: 
  Country: None (occurrence: None)
  Receive Date: 20100927
  Receipt Date: 20100914
  Transmission Date: 20110219
  Serious: Yes (Hospitalization)
  Sender: FDA-Public Use
  Company Number: 018176

PATIENT
  Sex: Female

DRUGS (8)
  1. CERTOLIZUMAB PEGOL (CERTOLIZUMAB PEGOL) [Suspect]
     Indication: RHEUMATOID ARTHRITIS
     Dosage: 200 MG 1X/2 WEEKS SUBCUTANEOUS
     Route: 058
     Dates: start: 20100223, end: 20100812
  2. RHEUMATREX [Suspect]
     Indication: RHEUMATOID ARTHRITIS
     Dosage: 8 MG 1X/WEEK ORAL
     Route: 048
     Dates: start: 20071001, end: 20100820
  3. REBAMIPIDE [Concomitant]
  4. TOCOPHEROL CONCENTRATE CAP [Concomitant]
  5. FOLIC ACID [Concomitant]
  6. CELECOXIB [Concomitant]
  7. AMLODIPINE BESYLATE [Concomitant]
  8. IRBESARTAN [Concomitant]

REACTIONS (10)
  - IMMUNE SYSTEM DISORDER [None]
  - LARYNGEAL MASS [None]
  - LARYNGEAL POLYP [None]
  - MASS [None]
  - NASOPHARYNGITIS [None]
  - PYOGENIC GRANULOMA [None]
  - RHINORRHOEA [None]
  - SINUSITIS [None]
  - SPUTUM ABNORMAL [None]
  - VOCAL CORD DISORDER [None]
